FAERS Safety Report 4335347-0 (Version None)
Quarter: 2004Q2

REPORT INFORMATION
  Report Type: 
  Country: None (occurrence: None)
  Receive Date: 20040406
  Receipt Date: 20040325
  Transmission Date: 20050107
  Serious: Yes (Hospitalization)
  Sender: FDA-Public Use
  Company Number: 163-20785-04030648

PATIENT
  Sex: Female

DRUGS (2)
  1. THALOMID [Suspect]
     Indication: MULTIPLE MYELOMA
     Dosage: 50 MG, DAILY, ORAL
     Route: 048
     Dates: start: 20010808
  2. COUMADIN [Concomitant]

REACTIONS (4)
  - ARTERIOVENOUS GRAFT SITE COMPLICATION [None]
  - DIALYSIS [None]
  - RENAL FAILURE [None]
  - SKIN DISCOLOURATION [None]
